FAERS Safety Report 24322419 (Version 1)
Quarter: 2024Q3

REPORT INFORMATION
  Report Type: Spontaneous
  Country: DE (occurrence: None)
  Receive Date: 20240916
  Receipt Date: 20240916
  Transmission Date: 20241017
  Serious: Yes (Other)
  Sender: ASTRAZENECA
  Company Number: 2024A206931

PATIENT
  Sex: Female

DRUGS (11)
  1. FULVESTRANT [Suspect]
     Active Substance: FULVESTRANT
     Indication: Metastases to lung
  2. FULVESTRANT [Suspect]
     Active Substance: FULVESTRANT
     Indication: Breast cancer
  3. IBRANCE [Suspect]
     Active Substance: PALBOCICLIB
     Indication: Metastases to lung
     Dosage: 125 MG
     Dates: start: 201707, end: 202212
  4. IBRANCE [Suspect]
     Active Substance: PALBOCICLIB
     Indication: Breast cancer
     Dosage: 125 MG
     Dates: start: 201707, end: 202212
  5. IBRANCE [Suspect]
     Active Substance: PALBOCICLIB
     Indication: Metastases to lung
     Dosage: 100 MG
     Dates: start: 202212
  6. IBRANCE [Suspect]
     Active Substance: PALBOCICLIB
     Indication: Breast cancer
     Dosage: 100 MG
     Dates: start: 202212
  7. LETROZOLE [Suspect]
     Active Substance: LETROZOLE
     Indication: Metastases to lung
     Dosage: 2.5 MG
     Dates: start: 201707
  8. LETROZOLE [Suspect]
     Active Substance: LETROZOLE
     Indication: Metastases to lung
     Dosage: 2.5 MG
     Dates: start: 201707
  9. LETROZOLE [Suspect]
     Active Substance: LETROZOLE
     Indication: Metastases to lung
     Dosage: 2.5 MG
     Dates: start: 2024
  10. LETROZOLE [Suspect]
     Active Substance: LETROZOLE
     Indication: Metastases to lung
     Dosage: 2.5 MG
     Dates: start: 2024
  11. RIBOCICLIB [Concomitant]
     Active Substance: RIBOCICLIB
     Indication: Breast cancer
     Dates: start: 2024

REACTIONS (6)
  - Neoplasm [Not Recovered/Not Resolved]
  - Fatigue [Recovered/Resolved]
  - Dizziness [Recovered/Resolved]
  - Hypersensitivity [Recovered/Resolved]
  - Somnolence [Recovered/Resolved]
  - Malaise [Recovered/Resolved]

NARRATIVE: CASE EVENT DATE: 20231001
